FAERS Safety Report 10768862 (Version 1)
Quarter: 2015Q1

REPORT INFORMATION
  Report Type: Report from Study
  Country: CO (occurrence: CO)
  Receive Date: 20150206
  Receipt Date: 20150206
  Transmission Date: 20150721
  Serious: Yes (Hospitalization)
  Sender: FDA-Public Use
  Company Number: CO-ROCHE-1534242

PATIENT
  Sex: Male
  Weight: 61 kg

DRUGS (1)
  1. LUCENTIS [Suspect]
     Active Substance: RANIBIZUMAB
     Indication: RETINAL DETACHMENT
     Dosage: OT
     Route: 050

REACTIONS (2)
  - Renal disorder [Recovering/Resolving]
  - Off label use [Unknown]
